FAERS Safety Report 8177996-8 (Version None)
Quarter: 2012Q1

REPORT INFORMATION
  Report Type: 
  Country: None (occurrence: None)
  Receive Date: 20120301
  Receipt Date: 20120223
  Transmission Date: 20120608
  Serious: Yes (Hospitalization, Other)
  Sender: FDA-Public Use
  Company Number: GB-BAYER-2011-026743

PATIENT
  Age: 77 Year
  Sex: Female

DRUGS (9)
  1. CIPROFLOXACIN HYDROCHLORIDE [Suspect]
  2. ASPIRIN [Concomitant]
     Dosage: 75 MG, UNK
     Dates: start: 20040101
  3. LEVOTHYROXINE SODIUM [Concomitant]
     Dosage: 100 ?G, UNK
     Dates: start: 20040101
  4. NICORANDIL [Concomitant]
     Dosage: 10 MG, BID
     Dates: start: 20040101
  5. FUROSEMIDE SODIUM [Concomitant]
     Dosage: 40 MG, UNK
     Dates: start: 20040101
  6. SIMVASTATIN [Interacting]
     Indication: PRODUCT USED FOR UNKNOWN INDICATION
     Dosage: 40 MG, UNK
  7. ISOSORBIDE MONONITRATE [Concomitant]
     Dosage: 20 MG, BID
     Dates: start: 20040101
  8. PINDOLOL [Concomitant]
     Dosage: 2.5 MG, QD
     Dates: start: 20040101
  9. CIMETIDINE [Concomitant]
     Dosage: UNK UNK, QD
     Dates: start: 20040101

REACTIONS (5)
  - POLYMYOSITIS [None]
  - RHABDOMYOLYSIS [None]
  - MYALGIA [None]
  - MUSCULAR WEAKNESS [None]
  - CHROMATURIA [None]
